FAERS Safety Report 12949325 (Version 3)
Quarter: 2020Q4

REPORT INFORMATION
  Report Type: Spontaneous
  Country: US (occurrence: US)
  Receive Date: 20161117
  Receipt Date: 20201014
  Transmission Date: 20210113
  Serious: No
  Sender: FDA-Public Use
  Company Number: US-PFIZER INC-2016535667

PATIENT
  Age: 52 Year
  Sex: Female

DRUGS (18)
  1. GEMFIBROZIL. [Concomitant]
     Active Substance: GEMFIBROZIL
     Dosage: 160 MG, 2X/DAY
     Route: 048
     Dates: start: 20150212
  2. HCTZ [Concomitant]
     Active Substance: HYDROCHLOROTHIAZIDE
     Dosage: 25 MG, DAILY
     Route: 048
     Dates: start: 20150212
  3. GLIMEPIRIDE. [Concomitant]
     Active Substance: GLIMEPIRIDE
     Dosage: 4 MG, 2X/DAY
     Route: 048
     Dates: start: 20150212
  4. ATORVASTATIN [Concomitant]
     Active Substance: ATORVASTATIN
     Dosage: 40 MG, 1X/DAY (QHS)
  5. VENLAFAXINE [Concomitant]
     Active Substance: VENLAFAXINE HYDROCHLORIDE
     Dosage: 150 MG, DAILY
     Route: 048
     Dates: start: 20150212
  6. BENZONATATE. [Concomitant]
     Active Substance: BENZONATATE
     Dosage: 100 MG, AS NEEDED (TID PRN)
     Dates: start: 20150212
  7. CLONIDINE. [Concomitant]
     Active Substance: CLONIDINE
     Dosage: 0.1 MG, DAILY
     Route: 048
     Dates: start: 20150212
  8. LOSATAN [Concomitant]
     Active Substance: LOSARTAN
     Dosage: 50 MG, 1X/DAY
     Route: 048
     Dates: start: 20150212
  9. VENTOLIN [Concomitant]
     Active Substance: ALBUTEROL SULFATE
     Dosage: 2 P QID PRN
     Dates: start: 20150212
  10. ALBUTEROL. [Concomitant]
     Active Substance: ALBUTEROL
     Dosage: SOLN T NEB QID PRN
     Dates: start: 20150212
  11. HUMULIN N [Concomitant]
     Active Substance: INSULIN HUMAN
     Dosage: UNK, 1X/DAY (QHS)
     Route: 058
     Dates: start: 20150212
  12. HUMULIN 70/30 [Concomitant]
     Active Substance: INSULIN HUMAN
     Dosage: 30 BID,40 AM TO 35 PM, 45 UNIT BID, 50 BID, 55 IU AM 50U PM; 70 60 NP, 70 AM + 65 PM, 72 U BID
  13. VITAMIN B [Concomitant]
     Active Substance: VITAMIN B
  14. CARVEDILOL. [Concomitant]
     Active Substance: CARVEDILOL
     Dosage: 625 MG, 2X/DAY
     Route: 048
     Dates: start: 20150212
  15. VITAMIN D3 [Concomitant]
     Active Substance: CHOLECALCIFEROL
     Dosage: 5000 IU, DAILY
  16. LYRICA [Suspect]
     Active Substance: PREGABALIN
     Dosage: 300 MG, 2X/DAY
     Route: 048
     Dates: start: 20150212
  17. HUMULIN N [Concomitant]
     Active Substance: INSULIN HUMAN
     Dosage: INCREASE 25 UNITS SQ QHS
     Route: 058
     Dates: start: 20150511
  18. METFORMIN HCL [Concomitant]
     Active Substance: METFORMIN HYDROCHLORIDE
     Dosage: 1000 MG, 2X/DAY
     Route: 048
     Dates: start: 20150212

REACTIONS (1)
  - Burning sensation [Unknown]
